FAERS Safety Report 5990094-4 (Version None)
Quarter: 2008Q4

REPORT INFORMATION
  Report Type: 
  Country: None (occurrence: None)
  Receive Date: 20081211
  Receipt Date: 20081205
  Transmission Date: 20090506
  Serious: Yes (Other)
  Sender: FDA-Public Use
  Company Number: BR-JNJFOC-20081202024

PATIENT
  Age: 94 Year
  Sex: Male
  Weight: 75 kg

DRUGS (8)
  1. RISPERDAL [Suspect]
     Route: 048
  2. RISPERDAL [Suspect]
     Route: 048
  3. RISPERDAL [Suspect]
     Indication: HALLUCINATION
     Route: 048
  4. TENADREN [Concomitant]
     Indication: HYPERTENSION
     Dosage: SINCE MORE THAN 10 YEARS
     Route: 048
  5. METFORMIN [Concomitant]
     Indication: DIABETES MELLITUS
     Dosage: SINCE MORE THAN 10 YEARS AGO
     Route: 048
  6. DIAMICRON MR [Concomitant]
     Indication: DIABETES MELLITUS
     Dosage: SINCE MORE THAN 10 YEARS AGO
     Route: 048
  7. RIVOTRIL [Concomitant]
     Indication: SLEEP DISORDER THERAPY
     Dosage: 3 DROPS A DAY BEFORE GOING TO BED/ THE DOSE CAN BE INCREASED AS NEEDED
     Route: 048
  8. CEBRILLIN [Concomitant]
     Indication: DEPRESSION
     Route: 048

REACTIONS (2)
  - BLISTER [None]
  - BLOOD GLUCOSE INCREASED [None]
